FAERS Safety Report 18037885 (Version 1)
Quarter: 2020Q3

REPORT INFORMATION
  Report Type: Spontaneous
  Country: US (occurrence: US)
  Receive Date: 20200717
  Receipt Date: 20200717
  Transmission Date: 20201103
  Serious: Yes (Death, Hospitalization)
  Sender: FDA-Public Use
  Company Number: US-MYLANLABS-2020M1064418

PATIENT
  Age: 11 Year
  Sex: Female

DRUGS (18)
  1. BUSULFAN. [Suspect]
     Active Substance: BUSULFAN
     Indication: BONE MARROW CONDITIONING REGIMEN
     Dosage: 2.7 MILLIGRAM/KILOGRAM, QD, ADMINISTERED ON DAYS ?4, ?3 AND ?2
     Route: 065
  2. MYCOPHENOLATE MOFETIL. [Suspect]
     Active Substance: MYCOPHENOLATE MOFETIL
     Indication: PROPHYLAXIS AGAINST GRAFT VERSUS HOST DISEASE
     Dosage: ADMINISTERED FROM DAY +5 TO DAY +35
     Route: 065
  3. FLUDARABINE [Suspect]
     Active Substance: FLUDARABINE PHOSPHATE
     Indication: BONE MARROW CONDITIONING REGIMEN
     Dosage: 30 MILLIGRAM/SQ. METER, QD, ADMINISTERED FROM DAYS ?6 TO ?2
     Route: 065
  4. METHYLPREDNISOLONE. [Suspect]
     Active Substance: METHYLPREDNISOLONE
     Indication: IMMUNOSUPPRESSANT DRUG THERAPY
     Dosage: DOSE: CUMULATIVE DOSE OF 600MG DURING POST?OPERATIVE WEEK 1
     Route: 065
  5. AZITHROMYCIN ANHYDROUS. [Concomitant]
     Active Substance: AZITHROMYCIN ANHYDROUS
     Indication: GASTROENTERITIS CRYPTOSPORIDIAL
     Route: 065
  6. VALGANCICLOVIR. [Concomitant]
     Active Substance: VALGANCICLOVIR
     Indication: INFECTION PROPHYLAXIS
     Dosage: ADMINISTERED DAILY
     Route: 065
  7. PAROMOMYCIN [Concomitant]
     Active Substance: PAROMOMYCIN
     Indication: GASTROENTERITIS CRYPTOSPORIDIAL
     Route: 065
  8. PREDNISOLONE. [Suspect]
     Active Substance: PREDNISOLONE
     Indication: IMMUNOSUPPRESSANT DRUG THERAPY
     Dosage: DOSE: TAPERING DOSES BEGINNING AT 1 MG/KG/DAY, CONTINUED UNTIL POST?OPERATIVE WEEK 10
     Route: 065
  9. SULPHAMETHOXAZOLE/TRIMETHOPRIM [Suspect]
     Active Substance: SULFAMETHOXAZOLE\TRIMETHOPRIM
     Indication: INFECTION PROPHYLAXIS
     Route: 065
  10. NITAZOXANIDE [Concomitant]
     Active Substance: NITAZOXANIDE
     Indication: GASTROENTERITIS CRYPTOSPORIDIAL
     Route: 065
  11. RIFAXIMIN. [Concomitant]
     Active Substance: RIFAXIMIN
     Indication: GASTROENTERITIS CRYPTOSPORIDIAL
     Route: 065
  12. MEROPENEM. [Suspect]
     Active Substance: MEROPENEM
     Indication: INFECTION PROPHYLAXIS
     Route: 065
  13. TACROLIMUS. [Suspect]
     Active Substance: TACROLIMUS
     Indication: PROPHYLAXIS AGAINST GRAFT VERSUS HOST DISEASE
     Dosage: ADMINISTERED FROM DAY +5 TO DAY +180
     Route: 065
  14. CYCLOPHOSPHAMIDE. [Suspect]
     Active Substance: CYCLOPHOSPHAMIDE
     Indication: BONE MARROW CONDITIONING REGIMEN
     Dosage: 14.5 MILLIGRAM/KILOGRAM, ADMINISTERED ON DAYS ?6 AND ?5
     Route: 065
  15. TACROLIMUS. [Suspect]
     Active Substance: TACROLIMUS
     Indication: IMMUNOSUPPRESSANT DRUG THERAPY
     Dosage: ADMINISTERED UNTIL THE TIME OF HSCT (DISCONTINUED ON DAY ?7)
     Route: 065
  16. ACICLOVIR [Suspect]
     Active Substance: ACYCLOVIR
     Indication: HERPES SIMPLEX VIRAEMIA
     Route: 065
  17. BASILIXIMAB [Suspect]
     Active Substance: BASILIXIMAB
     Indication: IMMUNOSUPPRESSANT DRUG THERAPY
     Dosage: DOSE: 20MG DURING POST?OPERATIVE WEEK 1
     Route: 065
  18. CYCLOPHOSPHAMIDE. [Suspect]
     Active Substance: CYCLOPHOSPHAMIDE
     Indication: PROPHYLAXIS AGAINST GRAFT VERSUS HOST DISEASE
     Dosage: 50 MILLIGRAM/KILOGRAM, ADMINISTERED ON DAYS +3 AND +4
     Route: 065

REACTIONS (20)
  - Ascites [Not Recovered/Not Resolved]
  - Systemic candida [Not Recovered/Not Resolved]
  - Hepatic failure [Not Recovered/Not Resolved]
  - Candida sepsis [Fatal]
  - Drug ineffective [Unknown]
  - Condition aggravated [Not Recovered/Not Resolved]
  - Haemorrhage [Not Recovered/Not Resolved]
  - Pseudomonas infection [Not Recovered/Not Resolved]
  - Multiple organ dysfunction syndrome [Fatal]
  - Venoocclusive liver disease [Not Recovered/Not Resolved]
  - Pneumonia pseudomonal [Not Recovered/Not Resolved]
  - Coagulopathy [Fatal]
  - Venoocclusive disease [Not Recovered/Not Resolved]
  - Infective exacerbation of bronchiectasis [Not Recovered/Not Resolved]
  - Transplant failure [Not Recovered/Not Resolved]
  - Herpes simplex viraemia [Fatal]
  - Lymphopenia [Not Recovered/Not Resolved]
  - Biliary tract infection bacterial [Not Recovered/Not Resolved]
  - Metabolic disorder [Fatal]
  - Delayed engraftment [Not Recovered/Not Resolved]
